FAERS Safety Report 17194942 (Version 4)
Quarter: 2021Q1

REPORT INFORMATION
  Report Type: Report from Study
  Country: US (occurrence: US)
  Receive Date: 20191224
  Receipt Date: 20210210
  Transmission Date: 20210419
  Serious: No
  Sender: FDA-Public Use
  Company Number: NVSC2019US077703

PATIENT
  Sex: Male

DRUGS (2)
  1. FUROSEMIDE. [Concomitant]
     Active Substance: FUROSEMIDE
     Indication: PRODUCT USED FOR UNKNOWN INDICATION
     Dosage: UNK
     Route: 065
  2. ENTRESTO [Suspect]
     Active Substance: SACUBITRIL\VALSARTAN
     Indication: CARDIAC FAILURE
     Dosage: 100 MG (49/51), BID
     Route: 048

REACTIONS (7)
  - Glycosylated haemoglobin decreased [Unknown]
  - Ejection fraction decreased [Unknown]
  - Swelling [Unknown]
  - Joint swelling [Unknown]
  - Blood glucose decreased [Unknown]
  - Blood triglycerides decreased [Unknown]
  - Blood cholesterol decreased [Unknown]
